FAERS Safety Report 15777099 (Version 1)
Quarter: 2018Q4

REPORT INFORMATION
  Report Type: Report from Study
  Country: US (occurrence: US)
  Receive Date: 20181231
  Receipt Date: 20181231
  Transmission Date: 20190205
  Serious: Yes (Life-Threatening, Hospitalization)
  Sender: FDA-Public Use
  Company Number: US-PFIZER INC-2018534255

PATIENT
  Age: 66 Year
  Sex: Male
  Weight: 92.4 kg

DRUGS (27)
  1. PEMETREXED. [Suspect]
     Active Substance: PEMETREXED
     Indication: NON-SMALL CELL LUNG CANCER METASTATIC
     Dosage: 500 MILLIGRAM/SQ. METER, Q3W
     Route: 042
     Dates: start: 20180910, end: 20181001
  2. XANAX [Concomitant]
     Active Substance: ALPRAZOLAM
     Dosage: 0.5 MG
     Dates: start: 20180809
  3. BLINDED THERAPY [Suspect]
     Active Substance: INVESTIGATIONAL PRODUCT
     Dosage: UNK, BID
     Route: 048
     Dates: start: 20181023, end: 20181112
  4. NORCO [Concomitant]
     Active Substance: ACETAMINOPHEN\HYDROCODONE BITARTRATE
     Dosage: 325 MG
     Dates: start: 20180820
  5. COMPAZINE [Concomitant]
     Active Substance: PROCHLORPERAZINE MALEATE
     Dosage: 10 MG
     Dates: start: 20180904
  6. FLOMAX [Concomitant]
     Active Substance: TAMSULOSIN HYDROCHLORIDE
     Dosage: 0.4 MG
     Dates: start: 20171026
  7. ZOFRAN [ONDANSETRON HYDROCHLORIDE] [Concomitant]
     Dosage: 4 MG
     Dates: start: 20181008
  8. PEMETREXED. [Suspect]
     Active Substance: PEMETREXED
     Dosage: 500 MILLIGRAM/SQ. METER, Q3W
     Route: 042
     Dates: start: 20181022, end: 20181022
  9. GABAPENTIN. [Concomitant]
     Active Substance: GABAPENTIN
     Dosage: 300 MG
     Dates: start: 20180829
  10. REMERON [Concomitant]
     Active Substance: MIRTAZAPINE
     Dosage: 15 MG
     Dates: start: 20180618
  11. BLINDED THERAPY [Suspect]
     Active Substance: INVESTIGATIONAL PRODUCT
     Indication: NON-SMALL CELL LUNG CANCER METASTATIC
     Dosage: UNK, BID
     Route: 048
     Dates: start: 20180910, end: 20181022
  12. DECADRON [Concomitant]
     Active Substance: DEXAMETHASONE
     Dosage: 4 MG
     Dates: start: 20180909
  13. PEPCID [FAMOTIDINE] [Concomitant]
     Dosage: 40 MG
     Dates: start: 20180523
  14. AMBIEN [Concomitant]
     Active Substance: ZOLPIDEM TARTRATE
     Dosage: 10 MG
     Dates: start: 20180810
  15. MK-3475 [Suspect]
     Active Substance: PEMBROLIZUMAB
     Indication: NON-SMALL CELL LUNG CANCER METASTATIC
     Dosage: 200 MILLIGRAM, Q3W
     Route: 042
     Dates: start: 20180910, end: 20181001
  16. COLACE [Concomitant]
     Active Substance: DOCUSATE SODIUM
     Dosage: 100 MG
     Dates: start: 20180901
  17. CARBOPLATIN. [Suspect]
     Active Substance: CARBOPLATIN
     Dosage: AUC 5-6; AREA UNDER THE CURVE (AUC) 5, Q3W
     Route: 042
     Dates: start: 20181022, end: 20181022
  18. FOLIC ACID. [Concomitant]
     Active Substance: FOLIC ACID
     Dosage: 1 MG
     Dates: start: 20180904
  19. SENOKOT [Concomitant]
     Active Substance: SENNOSIDES
     Dosage: 8.6 MG
     Dates: start: 20180901
  20. METAMUCIL THERAPY FOR REGULARITY [Concomitant]
     Active Substance: PSYLLIUM HUSK
     Dosage: 3 G
     Dates: start: 20180901
  21. AMLODIPINE [Concomitant]
     Active Substance: AMLODIPINE BESYLATE
     Dosage: 5 MG
     Dates: start: 20171020
  22. CYANOCOBALAMIN. [Concomitant]
     Active Substance: CYANOCOBALAMIN
     Dosage: 1000 DF
     Dates: start: 20180904
  23. TYLENOL [Concomitant]
     Active Substance: ACETAMINOPHEN
     Dosage: 500 MG
     Dates: start: 200001
  24. ZYPREXA [Concomitant]
     Active Substance: OLANZAPINE
     Dosage: 10 MG
     Dates: start: 20181008, end: 20181112
  25. CARBOPLATIN. [Suspect]
     Active Substance: CARBOPLATIN
     Indication: NON-SMALL CELL LUNG CANCER METASTATIC
     Dosage: AUC 5-6; AREA UNDER THE CURVE (AUC) 5, Q3W
     Route: 042
     Dates: start: 20180910, end: 20181001
  26. MK-3475 [Suspect]
     Active Substance: PEMBROLIZUMAB
     Dosage: 200 MILLIGRAM, Q3W
     Route: 042
     Dates: start: 20181022, end: 20181022
  27. ALBUTEROL [SALBUTAMOL] [Concomitant]
     Active Substance: ALBUTEROL
     Dosage: 90 DF
     Dates: start: 20180807

REACTIONS (3)
  - Renal failure [Recovered/Resolved with Sequelae]
  - Liver function test increased [Recovering/Resolving]
  - Atrioventricular block complete [Recovered/Resolved]

NARRATIVE: CASE EVENT DATE: 20181119
